FAERS Safety Report 11568228 (Version 1)
Quarter: 2015Q3

REPORT INFORMATION
  Report Type: Spontaneous
  Country: US (occurrence: None)
  Receive Date: 20150925
  Receipt Date: 20150925
  Transmission Date: 20151125
  Serious: Yes (Other)
  Sender: FDA-Public Use
  Company Number: US-ZYDUS-009089

PATIENT
  Age: 57 Year
  Sex: Male

DRUGS (1)
  1. SIMVASTATIN(SIMVASTATIN) [Suspect]
     Active Substance: SIMVASTATIN
     Indication: PRODUCT USED FOR UNKNOWN INDICATION

REACTIONS (2)
  - Organising pneumonia [None]
  - Bronchiolitis [None]
